FAERS Safety Report 21238180 (Version 1)
Quarter: 2022Q3

REPORT INFORMATION
  Report Type: Spontaneous
  Country: US (occurrence: US)
  Receive Date: 20220822
  Receipt Date: 20220822
  Transmission Date: 20221027
  Serious: No
  Sender: FDA-Public Use
  Company Number: US-SANOFI-01239215

PATIENT
  Age: 21 Year
  Sex: Male

DRUGS (1)
  1. DUPIXENT [Suspect]
     Active Substance: DUPILUMAB
     Indication: Nasal polyps
     Dosage: 300 MG QOW AND DRUG TREATMENT DURATION:4 TO 5 MONTHS

REACTIONS (4)
  - Dizziness [Unknown]
  - Vertigo [Unknown]
  - Anxiety [Unknown]
  - Product use in unapproved indication [Unknown]
